FAERS Safety Report 6303909-7 (Version None)
Quarter: 2009Q3

REPORT INFORMATION
  Report Type: 
  Country: None (occurrence: None)
  Receive Date: 20090810
  Receipt Date: 20090810
  Transmission Date: 20100115
  Serious: Yes (Other)
  Sender: FDA-Public Use
  Company Number: None

PATIENT
  Age: 44 Year
  Sex: Female
  Weight: 74.1 kg

DRUGS (1)
  1. DILANTIN [Suspect]
     Indication: CONVULSION
     Dosage: 100MG 2 TABS IN AM PO 100 MG TABS QHS PO
     Route: 048
     Dates: start: 20071101

REACTIONS (3)
  - CONSTIPATION [None]
  - CONVULSION [None]
  - PRODUCT SUBSTITUTION ISSUE [None]
